FAERS Safety Report 7790521-6 (Version None)
Quarter: 2011Q3

REPORT INFORMATION
  Report Type: 
  Country: None (occurrence: None)
  Receive Date: 20110930
  Receipt Date: 20110919
  Transmission Date: 20111222
  Serious: Yes (Other)
  Sender: FDA-Public Use
  Company Number: PHHY2011US14147

PATIENT
  Sex: Male

DRUGS (1)
  1. TASIGNA [Suspect]
     Indication: LEUKAEMIA
     Dates: start: 20101001

REACTIONS (2)
  - NEOPLASM MALIGNANT [None]
  - SQUAMOUS CELL CARCINOMA OF SKIN [None]
